FAERS Safety Report 6665179-X (Version None)
Quarter: 2010Q2

REPORT INFORMATION
  Report Type: 
  Country: None (occurrence: None)
  Receive Date: 20100402
  Receipt Date: 20100330
  Transmission Date: 20101027
  Serious: Yes (Hospitalization)
  Sender: FDA-Public Use
  Company Number: ES-BRISTOL-MYERS SQUIBB COMPANY-15041031

PATIENT
  Age: 43 Year
  Sex: Male

DRUGS (3)
  1. REYATAZ [Suspect]
     Indication: HIV INFECTION
     Dosage: 30CAPS
     Route: 048
     Dates: start: 20080317, end: 20090420
  2. NORVIR [Suspect]
     Indication: HIV INFECTION
     Dosage: NORVIR 100 MG 84 SOFT CAPS
     Route: 048
     Dates: start: 20080317, end: 20090420
  3. TRUVADA [Concomitant]
     Indication: HIV INFECTION
     Dosage: 1DF-1FD DURATION:1034 DAYS TRUVADA 200 MG/245MG TABS
     Route: 048
     Dates: start: 20060622

REACTIONS (2)
  - JAUNDICE [None]
  - RENAL COLIC [None]
